FAERS Safety Report 7325371-8 (Version None)
Quarter: 2011Q1

REPORT INFORMATION
  Report Type: 
  Country: None (occurrence: None)
  Receive Date: 20110302
  Receipt Date: 20110223
  Transmission Date: 20110831
  Serious: Yes (Hospitalization, Other)
  Sender: FDA-Public Use
  Company Number: US-ASTRAZENECA-2007UW02132

PATIENT
  Age: 18123 Day
  Sex: Female
  Weight: 74.8 kg

DRUGS (27)
  1. TRILEPTAL [Concomitant]
  2. BIAXIN [Concomitant]
     Dosage: 500 MG XL 1 B.I.D
     Dates: start: 20030221
  3. TENORMIN [Concomitant]
     Dates: start: 20030220
  4. PRAVACHOL [Concomitant]
     Dates: start: 20030425
  5. PREMPRO [Concomitant]
     Dosage: 0.625 MG / 2.5 MG DAILY
     Dates: start: 20011212
  6. NEURONTIN [Concomitant]
     Dates: start: 20021212
  7. FLEXERIL [Concomitant]
     Dosage: 10 MG 1 PRN
     Dates: start: 20011212
  8. ROLAIDS [Concomitant]
     Dates: start: 20011212
  9. XANAX [Concomitant]
     Dosage: 1 MG DAILY AND 3 Q H.S
     Dates: start: 20011212
  10. GLYSET [Concomitant]
  11. PROZAC [Concomitant]
     Dates: start: 20011212
  12. PHENERGAN VC [Concomitant]
     Dosage: 1 TSP Q 4 HRS
     Dates: start: 20030221
  13. SEROQUEL [Suspect]
     Dosage: 25-225 MG
     Route: 048
     Dates: start: 20011129
  14. NEXIUM [Concomitant]
     Dates: start: 20011212
  15. DIFLUCAN [Concomitant]
     Dosage: 200 MG 1 Q 4 DAYS
     Dates: start: 20030221
  16. TRAZODONE HCL [Concomitant]
     Dates: start: 20011212
  17. TUMS [Concomitant]
     Dates: start: 20011212
  18. BENTYL [Concomitant]
     Dosage: 10 MG Q 6 HRS PRN
     Dates: start: 20011212
  19. SEROQUEL [Suspect]
     Route: 048
     Dates: start: 20011201
  20. ACTOS [Concomitant]
     Dates: start: 20030220
  21. ACETAMINOPHEN [Concomitant]
  22. CELEXA [Concomitant]
  23. WELCHOL [Concomitant]
  24. SINGULAIR [Concomitant]
     Dates: start: 20030220
  25. SEROQUEL [Suspect]
     Dosage: 25 MG 1-2 Q H.S, 75 MG
     Route: 048
     Dates: start: 20011212
  26. ALBUTEROL [Concomitant]
     Dosage: 0.83 MG
     Dates: start: 20030220
  27. LASIX [Concomitant]
     Dates: start: 20011212

REACTIONS (28)
  - ADNEXA UTERI MASS [None]
  - CHANGE OF BOWEL HABIT [None]
  - NIGHT SWEATS [None]
  - CONVULSION [None]
  - BRONCHITIS [None]
  - ALOPECIA [None]
  - MUSCLE SPASMS [None]
  - OEDEMA PERIPHERAL [None]
  - ASTHMA [None]
  - DYSPNOEA [None]
  - CHEST PAIN [None]
  - POSTMENOPAUSAL HAEMORRHAGE [None]
  - OROPHARYNGEAL PAIN [None]
  - CHILLS [None]
  - NAUSEA [None]
  - HYPOAESTHESIA [None]
  - ABDOMINAL PAIN LOWER [None]
  - ACROCHORDON [None]
  - ADENOVIRUS INFECTION [None]
  - PELVIC MASS [None]
  - ABDOMINAL DISTENSION [None]
  - URINARY TRACT INFECTION [None]
  - FIBROMYALGIA [None]
  - CONSTIPATION [None]
  - DYSFUNCTIONAL UTERINE BLEEDING [None]
  - PELVIC PAIN [None]
  - HAEMORRHOIDS [None]
  - TYPE 2 DIABETES MELLITUS [None]
